FAERS Safety Report 23365523 (Version 4)
Quarter: 2024Q1

REPORT INFORMATION
  Report Type: Spontaneous
  Country: IT (occurrence: IT)
  Receive Date: 20240104
  Receipt Date: 20240205
  Transmission Date: 20240410
  Serious: Yes (Hospitalization, Other)
  Sender: FDA-Public Use
  Company Number: IT-ALNYLAM PHARMACEUTICALS, INC.-ALN-2023-006935

PATIENT

DRUGS (3)
  1. GIVLAARI [Suspect]
     Active Substance: GIVOSIRAN SODIUM
     Indication: Porphyria acute
     Dosage: 1.25 MICROGRAM/KILOGRAM, MONTHLY
     Route: 058
     Dates: start: 20230918
  2. GIVLAARI [Suspect]
     Active Substance: GIVOSIRAN SODIUM
     Dosage: 1.25 MICROGRAM/KILOGRAM, MONTHLY
     Route: 058
     Dates: start: 20231016
  3. NORMOCIS [Concomitant]
     Indication: Homocystinuria
     Dosage: UNK
     Route: 065
     Dates: start: 202104

REACTIONS (1)
  - Laryngeal squamous cell carcinoma [Recovered/Resolved]

NARRATIVE: CASE EVENT DATE: 20231201
